FAERS Safety Report 7217003-4 (Version None)
Quarter: 2011Q1

REPORT INFORMATION
  Report Type: 
  Country: None (occurrence: None)
  Receive Date: 20110110
  Receipt Date: 20101201
  Transmission Date: 20110831
  Serious: No
  Sender: FDA-Public Use
  Company Number: A0898242A

PATIENT

DRUGS (1)
  1. REQUIP XL [Suspect]
     Route: 065

REACTIONS (1)
  - DYSKINESIA [None]
